FAERS Safety Report 8954139 (Version 1)
Quarter: 2012Q4

REPORT INFORMATION
  Report Type: 
  Country: US (occurrence: US)
  Receive Date: 20121207
  Receipt Date: 20121207
  Transmission Date: 20130627
  Serious: Yes (Other)
  Sender: FDA-Public Use
  Company Number: US-JNJFOC-2005074293

PATIENT
  Age: 46 Year
  Sex: Female
  Weight: 70.31 kg

DRUGS (10)
  1. MOTRIN [Suspect]
     Indication: PAIN
     Dosage: Frequency Text: UNKNOWN
     Route: 048
     Dates: start: 2002
  2. NEURONTIN [Interacting]
     Indication: HEADACHE
     Route: 048
  3. NEURONTIN [Interacting]
     Indication: HEADACHE
     Route: 048
     Dates: start: 2003
  4. NEURONTIN [Interacting]
     Indication: HEADACHE
     Dosage: Daily Dose Qty: 1800 mg
     Route: 048
     Dates: start: 2002, end: 2003
  5. MOBIC [Suspect]
     Indication: PAIN
     Route: 048
     Dates: start: 20050509
  6. HYDROCODONE [Interacting]
     Indication: ILL-DEFINED DISORDER
     Dosage: Frequency Text: UNKNOWN
     Route: 065
  7. OXYCODONE [Interacting]
     Indication: PRODUCT USED FOR UNKNOWN INDICATION
  8. ULTRAM [Concomitant]
     Dosage: Frequency Text: UNKNOWN
     Route: 048
  9. ALL OTHER THERAPEUTIC PRODUCTS [Concomitant]
  10. ANTI-INFLAMMATORY MEDICATIONS [Concomitant]

REACTIONS (17)
  - Nerve compression [Not Recovered/Not Resolved]
  - Brain injury [Unknown]
  - Pain [Unknown]
  - Pain [Not Recovered/Not Resolved]
  - Intervertebral disc protrusion [Not Recovered/Not Resolved]
  - Neuropathy peripheral [Not Recovered/Not Resolved]
  - Nerve injury [Not Recovered/Not Resolved]
  - Drug interaction [Unknown]
  - Malaise [Unknown]
  - Insomnia [Unknown]
  - Drug ineffective [Unknown]
  - Back pain [Unknown]
  - Unevaluable event [Unknown]
  - Drug ineffective [Recovering/Resolving]
  - Pain in extremity [Not Recovered/Not Resolved]
  - Musculoskeletal pain [Not Recovered/Not Resolved]
  - Headache [Unknown]
